FAERS Safety Report 8189195-4 (Version None)
Quarter: 2012Q1

REPORT INFORMATION
  Report Type: 
  Country: None (occurrence: None)
  Receive Date: 20120307
  Receipt Date: 20120305
  Transmission Date: 20120608
  Serious: Yes (Other)
  Sender: FDA-Public Use
  Company Number: US-VERTEX PHARMACEUTICALS INC.-AE-2012-002830

PATIENT
  Sex: Female

DRUGS (8)
  1. DEPAKOTE [Concomitant]
  2. PROZAC [Concomitant]
  3. INCIVEK [Suspect]
     Route: 048
  4. PEGASYS [Concomitant]
     Indication: HEPATITIS C
     Route: 058
     Dates: start: 20120127, end: 20120224
  5. RIBAVIRIN [Concomitant]
     Indication: HEPATITIS C
     Route: 048
     Dates: start: 20120127, end: 20120224
  6. PEGASYS [Concomitant]
     Route: 058
  7. RIBAVIRIN [Concomitant]
     Route: 048
  8. INCIVEK [Suspect]
     Indication: HEPATITIS C
     Route: 048
     Dates: start: 20120127, end: 20120226

REACTIONS (1)
  - SUICIDE ATTEMPT [None]
